FAERS Safety Report 15717472 (Version 1)
Quarter: 2018Q4

REPORT INFORMATION
  Report Type: Spontaneous
  Country: ES (occurrence: ES)
  Receive Date: 20181213
  Receipt Date: 20181213
  Transmission Date: 20190205
  Serious: Yes (Other)
  Sender: FDA-Public Use
  Company Number: ES-BAYER-2018-226466

PATIENT
  Age: 37 Year
  Sex: Female
  Weight: 71 kg

DRUGS (6)
  1. LORAZEPAM PENSA [Concomitant]
     Indication: SLEEP DISORDER
     Dosage: 1 MG
  2. AZITROMICINA [Concomitant]
     Active Substance: AZITHROMYCIN DIHYDRATE
     Indication: PROPHYLAXIS
     Dosage: 500 MG
     Dates: start: 20181102, end: 20181105
  3. MELATONINA [Concomitant]
     Indication: SLEEP DISORDER
  4. KYLEENA [Suspect]
     Active Substance: LEVONORGESTREL
     Indication: DYSMENORRHOEA
     Dosage: 17.5 MCG/24HR, CONT
     Route: 015
  5. NUVARING [Concomitant]
     Active Substance: ETHINYL ESTRADIOL\ETONOGESTREL
     Indication: DYSMENORRHOEA
     Dates: start: 20181003, end: 20181030
  6. EUTIROX [Concomitant]
     Active Substance: LEVOTHYROXINE SODIUM
     Indication: HYPOTHYROIDISM
     Dosage: 150 MCG/24HR

REACTIONS (8)
  - Hypertension [Not Recovered/Not Resolved]
  - Loss of libido [Not Recovered/Not Resolved]
  - Anger [Not Recovered/Not Resolved]
  - Decreased appetite [Not Recovered/Not Resolved]
  - Depression [Not Recovered/Not Resolved]
  - Mood swings [Not Recovered/Not Resolved]
  - Anorgasmia [Not Recovered/Not Resolved]
  - Pelvic pain [Not Recovered/Not Resolved]

NARRATIVE: CASE EVENT DATE: 20181102
